FAERS Safety Report 5124688-5 (Version None)
Quarter: 2006Q4

REPORT INFORMATION
  Report Type: 
  Country: None (occurrence: None)
  Receive Date: 20061011
  Receipt Date: 20060712
  Transmission Date: 20070319
  Serious: Yes (Death, Hospitalization)
  Sender: FDA-Public Use
  Company Number: DEWYE122112JUL06

PATIENT
  Sex: Female
  Weight: 57 kg

DRUGS (9)
  1. ENBREL [Suspect]
     Indication: RHEUMATOID ARTHRITIS
     Route: 058
     Dates: start: 20021120, end: 20060601
  2. METHOTREXATE [Suspect]
     Indication: RHEUMATOID ARTHRITIS
     Dosage: 10 MG/WEEK
     Route: 048
     Dates: start: 20031117, end: 20060601
  3. EVISTA [Concomitant]
     Dosage: 1 MG PER DAY
  4. MARCUMAR [Concomitant]
     Indication: ATRIAL FIBRILLATION
     Dosage: UNKNOWN
     Route: 048
  5. DECORTIN [Concomitant]
     Dosage: 5 MG PER DAY
  6. FENTANYL [Concomitant]
     Dosage: 75 ?G/H PLASTER EVERY THREE DAYS
  7. CALCIMAGON [Concomitant]
     Dosage: 2 TABLETS PER DAY
  8. FOLIC ACID [Concomitant]
     Dosage: 10 MG AFTER MTX
  9. BISOPROLOL FUMARATE [Concomitant]
     Dosage: 5 MG PER DAY

REACTIONS (13)
  - C-REACTIVE PROTEIN INCREASED [None]
  - DECUBITUS ULCER [None]
  - DEHYDRATION [None]
  - FALL [None]
  - FRACTURE [None]
  - GENERAL PHYSICAL CONDITION ABNORMAL [None]
  - JOINT DISLOCATION [None]
  - LEUKOCYTOSIS [None]
  - MULTI-ORGAN FAILURE [None]
  - NECROSIS [None]
  - PAIN [None]
  - PYREXIA [None]
  - TENDON RUPTURE [None]
